FAERS Safety Report 24381259 (Version 2)
Quarter: 2025Q1

REPORT INFORMATION
  Report Type: Report from Study
  Country: BR (occurrence: BR)
  Receive Date: 20241001
  Receipt Date: 20250221
  Transmission Date: 20250409
  Serious: Yes (Other)
  Sender: RANBAXY
  Company Number: BR-SUN PHARMACEUTICAL INDUSTRIES LTD-2024R1-470674

PATIENT
  Age: 34 Year
  Sex: Female
  Weight: 64.4 kg

DRUGS (1)
  1. OMEGA 3 [Suspect]
     Active Substance: CAPSAICIN
     Indication: Dyslipidaemia
     Route: 065

REACTIONS (2)
  - Therapeutic product effect incomplete [Unknown]
  - Exposure during pregnancy [Unknown]
